FAERS Safety Report 11882700 (Version 1)
Quarter: 2015Q4

REPORT INFORMATION
  Report Type: Report from Study
  Country: EG (occurrence: EG)
  Receive Date: 20151231
  Receipt Date: 20151231
  Transmission Date: 20160305
  Serious: Yes (Other)
  Sender: FDA-Public Use
  Company Number: EG-BAXTER-2015BAX071323

PATIENT

DRUGS (12)
  1. FENTANYL. [Suspect]
     Active Substance: FENTANYL
     Indication: MAINTENANCE OF ANAESTHESIA
  2. ATRACURIUM [Suspect]
     Active Substance: ATRACURIUM
     Indication: MAINTENANCE OF ANAESTHESIA
  3. FENTANYL. [Suspect]
     Active Substance: FENTANYL
     Indication: ENDOTRACHEAL INTUBATION
     Route: 042
  4. THIOPENTAL [Suspect]
     Active Substance: THIOPENTAL
     Indication: ENDOTRACHEAL INTUBATION
  5. FENTANYL. [Suspect]
     Active Substance: FENTANYL
     Indication: INDUCTION OF ANAESTHESIA
     Route: 042
  6. MIDAZOLAM [Suspect]
     Active Substance: MIDAZOLAM\MIDAZOLAM HYDROCHLORIDE
     Indication: SEDATIVE THERAPY
     Route: 042
  7. LIDOCAINE. [Concomitant]
     Active Substance: LIDOCAINE
     Indication: LOCAL ANAESTHESIA
     Route: 065
  8. EPINEPHRINE. [Concomitant]
     Active Substance: EPINEPHRINE
     Indication: LOCAL ANAESTHESIA
     Route: 065
  9. SUPRANE [Suspect]
     Active Substance: DESFLURANE
     Indication: MAINTENANCE OF ANAESTHESIA
     Route: 055
  10. ATRACURIUM [Suspect]
     Active Substance: ATRACURIUM
     Indication: INDUCTION OF ANAESTHESIA
     Route: 042
  11. ATRACURIUM [Suspect]
     Active Substance: ATRACURIUM
     Indication: ENDOTRACHEAL INTUBATION
     Route: 042
  12. THIOPENTAL [Suspect]
     Active Substance: THIOPENTAL
     Indication: INDUCTION OF ANAESTHESIA
     Route: 042

REACTIONS (1)
  - Brain oedema [Recovering/Resolving]
